FAERS Safety Report 6564616-9 (Version None)
Quarter: 2010Q1

REPORT INFORMATION
  Report Type: 
  Country: None (occurrence: None)
  Receive Date: 20100201
  Receipt Date: 20100125
  Transmission Date: 20100710
  Serious: Yes (Death)
  Sender: FDA-Public Use
  Company Number: PHHY2010CA03680

PATIENT
  Sex: Female
  Weight: 63.8 kg

DRUGS (5)
  1. ALISKIREN ALI+ [Suspect]
     Dosage: 150 MG, UNK
     Route: 048
     Dates: start: 20100105
  2. LIPITOR [Concomitant]
     Dosage: 20 MG, UNK
  3. GLYBURIDE [Concomitant]
  4. ALTACE [Concomitant]
     Dosage: 10 MG, UNK
     Route: 048
  5. HUMULIN N [Concomitant]
     Dosage: 10 U, UNK

REACTIONS (3)
  - CEREBROVASCULAR ACCIDENT [None]
  - ENDARTERECTOMY [None]
  - TRANSIENT ISCHAEMIC ATTACK [None]
